FAERS Safety Report 8806444 (Version 3)
Quarter: 2013Q1

REPORT INFORMATION
  Report Type: Spontaneous
  Country: JP (occurrence: None)
  Receive Date: 20120919
  Receipt Date: 20130130
  Transmission Date: 20140127
  Serious: Yes (Hospitalization)
  Sender: FDA-Public Use
  Company Number: TCI2012A05017

PATIENT
  Age: 64 Year
  Sex: Female

DRUGS (9)
  1. TAKEPRON [Suspect]
     Indication: PROPHYLAXIS AGAINST GASTROINTESTINAL ULCER
     Dosage: (15 MG, 1 IN 1 D)?
     Route: 048
     Dates: start: 20120214, end: 20120425
  2. BAYASPIRIN (ACETYLSALICYLIC ACID) (ACETYLSALICYLIC ACID) [Concomitant]
  3. MAGLAX [Concomitant]
  4. LASIX (FUROSEMIDE) [Concomitant]
  5. LIVALO (PITAVASTATIN CALCIUM) [Concomitant]
  6. LAXSORONE (SENNOSIDE A+B CALCIUM) [Concomitant]
  7. HUMULIN R (INSULIN HUMAN) [Concomitant]
  8. HUMALOG (INSULIN LISPRO) [Concomitant]
  9. LANTUS (INSULIN GLARGINE) [Concomitant]

REACTIONS (3)
  - Eosinophilic pneumonia [None]
  - Pleural effusion [None]
  - Cardiomegaly [None]
